FAERS Safety Report 22378691 (Version 2)
Quarter: 2024Q2

REPORT INFORMATION
  Report Type: Spontaneous
  Country: US (occurrence: US)
  Receive Date: 20230529
  Receipt Date: 20240528
  Transmission Date: 20240715
  Serious: No
  Sender: FDA-Public Use
  Company Number: US-PERRIGO-22US016320

PATIENT
  Sex: Female
  Weight: 63.492 kg

DRUGS (5)
  1. MINOXIDIL [Suspect]
     Active Substance: MINOXIDIL
     Indication: Alopecia
     Dosage: APPROX. 1/2 TO 3/4 CAPFUL , QD
     Route: 061
  2. MINOXIDIL [Suspect]
     Active Substance: MINOXIDIL
     Indication: Accidental exposure to product
     Dosage: APPROX. 1/2 TO 3/4 CAPFUL , QD
     Route: 061
     Dates: start: 202401
  3. MINOXIDIL [Suspect]
     Active Substance: MINOXIDIL
     Dosage: UNKNOWN DRIPPED DOWN FACE, QD
     Route: 061
     Dates: start: 20240105, end: 20240114
  4. ATORVASTATIN [Concomitant]
     Active Substance: ATORVASTATIN
     Indication: Blood cholesterol increased
     Dosage: UNK
     Route: 065
     Dates: start: 2022
  5. OMEPRAZOLE [Concomitant]
     Active Substance: DONEPEZIL HYDROCHLORIDE\OMEPRAZOLE\OMEPRAZOLE MAGNESIUM
     Indication: Gastrooesophageal reflux disease
     Dosage: UNK
     Route: 065
     Dates: start: 2022

REACTIONS (4)
  - Therapeutic product effect incomplete [Unknown]
  - Wrong technique in product usage process [Unknown]
  - Accidental exposure to product [Unknown]
  - Incorrect dose administered [Unknown]
